FAERS Safety Report 22817592 (Version 2)
Quarter: 2023Q4

REPORT INFORMATION
  Report Type: Spontaneous
  Country: US (occurrence: US)
  Receive Date: 20230813
  Receipt Date: 20231009
  Transmission Date: 20240109
  Serious: No
  Sender: FDA-Public Use
  Company Number: US-JNJFOC-20230748286

PATIENT
  Age: 60 Year
  Sex: Female

DRUGS (3)
  1. WOMENS ROGAINE UNSCENTED [Suspect]
     Active Substance: MINOXIDIL
     Indication: Alopecia
     Dosage: HALF A CAPFUL.
     Route: 061
     Dates: start: 20230719
  2. WOMENS ROGAINE UNSCENTED [Suspect]
     Active Substance: MINOXIDIL
     Dosage: 2 APPLICATION
     Route: 061
     Dates: start: 20230801, end: 20230803
  3. VIVISCAL [DL- LACTIC ACID;PANTHENOL;SILICON DIOXIDE] [Concomitant]
     Indication: Product used for unknown indication

REACTIONS (4)
  - Skin irritation [Not Recovered/Not Resolved]
  - Application site pain [Unknown]
  - Expired product administered [Unknown]
  - Product lot number issue [Unknown]

NARRATIVE: CASE EVENT DATE: 20230101
